FAERS Safety Report 22603024 (Version 2)
Quarter: 2023Q2

REPORT INFORMATION
  Report Type: Spontaneous
  Country: CA (occurrence: None)
  Receive Date: 20230615
  Receipt Date: 20230616
  Transmission Date: 20230722
  Serious: Yes (Death)
  Sender: FDA-Public Use
  Company Number: CA-ROCHE-3368922

PATIENT
  Sex: Female
  Weight: 61 kg

DRUGS (1)
  1. RITUXIMAB [Suspect]
     Active Substance: RITUXIMAB
     Indication: Acquired haemophilia
     Dosage: DURATION OF THERAPY WAS 23 DAYS
     Route: 041

REACTIONS (2)
  - Death [Fatal]
  - Off label use [Fatal]
